FAERS Safety Report 9747725 (Version 1)
Quarter: 2013Q4

REPORT INFORMATION
  Report Type: Spontaneous
  Country: US (occurrence: US)
  Receive Date: 20131212
  Receipt Date: 20131212
  Transmission Date: 20140711
  Serious: No
  Sender: FDA-Public Use
  Company Number: US-TEVA-384690USA

PATIENT
  Age: 29 Year
  Sex: Female
  Weight: 86.26 kg

DRUGS (13)
  1. PARAGARD 380A [Suspect]
     Indication: CONTRACEPTION
     Route: 015
     Dates: start: 20120726, end: 20121228
  2. INDERAL-LA [Concomitant]
     Indication: MIGRAINE
  3. INDERAL-LA [Concomitant]
     Indication: PALPITATIONS
  4. NEXIUM [Concomitant]
     Indication: GASTROOESOPHAGEAL REFLUX DISEASE
  5. EFFEXOR [Concomitant]
     Indication: DEPRESSION
  6. IRON [Concomitant]
     Indication: ANAEMIA
  7. ZANAFLEX [Concomitant]
     Indication: MUSCLE SPASMS
  8. ZANAFLEX [Concomitant]
     Indication: SURGERY
  9. SINGULAIR [Concomitant]
     Indication: HYPERSENSITIVITY
  10. SINGULAIR [Concomitant]
     Indication: ASTHMA
  11. TRAZODONE [Concomitant]
     Indication: INSOMNIA
  12. LAMICTAL XL [Concomitant]
     Indication: CONVULSION
  13. IMITREX [Concomitant]
     Indication: MIGRAINE

REACTIONS (1)
  - Device expulsion [Recovered/Resolved]
